FAERS Safety Report 15319995 (Version 1)
Quarter: 2018Q3

REPORT INFORMATION
  Report Type: Spontaneous
  Country: US (occurrence: US)
  Receive Date: 20180820
  Receipt Date: 20180820
  Transmission Date: 20181010
  Serious: Yes (Hospitalization)
  Sender: FDA-Public Use
  Company Number: None

PATIENT
  Age: 67 Year
  Sex: Male
  Weight: 72.5 kg

DRUGS (10)
  1. ALLOPURINOL. [Concomitant]
     Active Substance: ALLOPURINOL
     Dates: start: 20180203, end: 20180211
  2. KCL REPLACEMENT SLIDING SCALE [Concomitant]
     Dates: start: 20180213, end: 20180220
  3. NA PHOS REPLACEMENT [Concomitant]
     Dates: start: 20180215, end: 20180216
  4. AZTREONAM. [Concomitant]
     Active Substance: AZTREONAM
     Dates: start: 20180209, end: 20180210
  5. CEFEPIME [Concomitant]
     Active Substance: CEFEPIME HYDROCHLORIDE
     Dates: start: 20180212, end: 20180213
  6. YESCARTA [Suspect]
     Active Substance: AXICABTAGENE CILOLEUCEL
     Indication: DIFFUSE LARGE B-CELL LYMPHOMA
     Route: 042
     Dates: start: 20180208, end: 20180208
  7. FILGRASTIM [Concomitant]
     Active Substance: FILGRASTIM
     Dates: start: 20180209, end: 20180214
  8. ATIVAN PRN NAUSEA [Concomitant]
     Dates: start: 20180213, end: 20180213
  9. ACYCLOVIR. [Concomitant]
     Active Substance: ACYCLOVIR
     Dates: start: 20180207, end: 20180308
  10. LEVETIRA [Concomitant]
     Dates: start: 20180206, end: 20180320

REACTIONS (2)
  - Cytokine release syndrome [None]
  - Neurotoxicity [None]

NARRATIVE: CASE EVENT DATE: 20180208
